FAERS Safety Report 17621170 (Version 1)
Quarter: 2020Q2

REPORT INFORMATION
  Report Type: Spontaneous
  Country: GB (occurrence: GB)
  Receive Date: 20200403
  Receipt Date: 20200403
  Transmission Date: 20200713
  Serious: Yes (Other)
  Sender: FDA-Public Use
  Company Number: GB-TEVA-2020-GB-1217132

PATIENT
  Age: 83 Year
  Sex: Male

DRUGS (5)
  1. DARATUMUMAB [Suspect]
     Active Substance: DARATUMUMAB
     Indication: PLASMA CELL MYELOMA
     Dosage: CYCLE 21
  2. DEXAMETHASONE. [Suspect]
     Active Substance: DEXAMETHASONE
     Indication: PLASMA CELL MYELOMA
     Dosage: CYCLE 21
  3. LENALIDOMIDE [Suspect]
     Active Substance: LENALIDOMIDE
     Indication: PLASMA CELL MYELOMA
     Dosage: CYCLE 21
  4. CODEINE [Concomitant]
     Active Substance: CODEINE
     Indication: BACK PAIN
  5. PARACETAMOL [Concomitant]
     Active Substance: ACETAMINOPHEN
     Indication: BACK PAIN

REACTIONS (7)
  - Dysphonia [Not Recovered/Not Resolved]
  - Diarrhoea [Not Recovered/Not Resolved]
  - Taste disorder [Not Recovered/Not Resolved]
  - Fatigue [Recovering/Resolving]
  - Neuropathy peripheral [Not Recovered/Not Resolved]
  - Alopecia [Not Recovered/Not Resolved]
  - Back pain [Not Recovered/Not Resolved]
